FAERS Safety Report 8076091-6 (Version None)
Quarter: 2012Q1

REPORT INFORMATION
  Report Type: 
  Country: None (occurrence: None)
  Receive Date: 20120127
  Receipt Date: 20110818
  Transmission Date: 20120608
  Serious: Yes (Other)
  Sender: FDA-Public Use
  Company Number: US-GLAXOSMITHKLINE-A0942232A

PATIENT
  Age: 61 Year
  Sex: Female

DRUGS (4)
  1. LEXAPRO [Concomitant]
     Indication: DEPRESSION
  2. ALPRAZOLAM [Concomitant]
     Indication: ANXIETY
  3. WELLBUTRIN [Suspect]
     Indication: DEPRESSION
     Route: 065
     Dates: end: 20101201
  4. REBIF [Suspect]
     Dosage: 44MCG THREE TIMES PER WEEK
     Route: 058
     Dates: start: 20070122

REACTIONS (2)
  - CONVULSION [None]
  - DEPRESSION [None]
